FAERS Safety Report 7341376-5 (Version None)
Quarter: 2011Q1

REPORT INFORMATION
  Report Type: 
  Country: None (occurrence: None)
  Receive Date: 20110309
  Receipt Date: 20100908
  Transmission Date: 20110831
  Serious: Yes (Other)
  Sender: FDA-Public Use
  Company Number: US-BAYER-200943268NA

PATIENT
  Sex: Female
  Weight: 104 kg

DRUGS (19)
  1. PLAQUENIL [Concomitant]
  2. PREDNISONE TAB [Concomitant]
     Dosage: 10 MG, QD
     Route: 048
     Dates: start: 20080901
  3. TOPAMAX [Concomitant]
  4. BUMEX [Concomitant]
     Indication: SWELLING
     Dosage: UNK
     Route: 048
     Dates: start: 20080901
  5. BUMEX [Concomitant]
     Indication: SYSTEMIC LUPUS ERYTHEMATOSUS
  6. VYTORIN [Concomitant]
  7. OCELLA [Suspect]
     Indication: PRODUCT USED FOR UNKNOWN INDICATION
     Dosage: UNK
     Dates: start: 20040101, end: 20090101
  8. TIZANIDINE HYDROCHLORIDE [Concomitant]
  9. ALBUTEROL [Concomitant]
  10. IBUPROFEN [Concomitant]
  11. MOTRIN [Concomitant]
  12. DEPO-MEDROL [Concomitant]
     Dosage: 40 MG, UNK
     Route: 030
     Dates: start: 20080929
  13. PLAQUENIL [Concomitant]
     Dosage: 200 MG, QD
     Route: 048
     Dates: start: 20080901
  14. NAPROXEN [Concomitant]
  15. YASMIN [Suspect]
     Indication: PRODUCT USED FOR UNKNOWN INDICATION
     Dosage: UNK
     Dates: start: 20040101, end: 20090101
  16. YAZ [Suspect]
     Indication: PRODUCT USED FOR UNKNOWN INDICATION
     Dosage: UNK
     Dates: start: 20040101, end: 20090101
  17. PREDNISONE TAB [Concomitant]
     Indication: SYSTEMIC LUPUS ERYTHEMATOSUS
  18. BUMETANIDE [Concomitant]
  19. HYDROXYCHLOROQUINE [Concomitant]
     Indication: SYSTEMIC LUPUS ERYTHEMATOSUS

REACTIONS (7)
  - STRESS [None]
  - ABDOMINAL PAIN UPPER [None]
  - CHOLECYSTITIS CHRONIC [None]
  - PAIN [None]
  - BILIARY DYSKINESIA [None]
  - CHOLESTEROSIS [None]
  - CHOLELITHIASIS [None]
